FAERS Safety Report 12648503 (Version 1)
Quarter: 2016Q3

REPORT INFORMATION
  Report Type: Spontaneous
  Country: US (occurrence: US)
  Receive Date: 20160812
  Receipt Date: 20160812
  Transmission Date: 20161109
  Serious: Yes (Hospitalization, Other)
  Sender: FDA-Public Use
  Company Number: US-NOVOPROD-504811

PATIENT
  Age: 66 Year
  Sex: Female
  Weight: 57.6 kg

DRUGS (2)
  1. LANTUS [Suspect]
     Active Substance: INSULIN GLARGINE
     Indication: TYPE 1 DIABETES MELLITUS
     Dosage: UNK
     Route: 058
  2. NOVOLOG [Suspect]
     Active Substance: INSULIN ASPART
     Indication: TYPE 1 DIABETES MELLITUS
     Dosage: UNK
     Route: 058
     Dates: start: 2001

REACTIONS (10)
  - Meningitis [Recovering/Resolving]
  - Supraventricular tachycardia [Unknown]
  - Cat scratch disease [Recovering/Resolving]
  - Encephalopathy [Recovering/Resolving]
  - Hypoacusis [Unknown]
  - Osteomyelitis [Recovering/Resolving]
  - Diabetic coma [Recovering/Resolving]
  - Sepsis [Recovering/Resolving]
  - Animal bite [Recovering/Resolving]
  - Visual impairment [Unknown]

NARRATIVE: CASE EVENT DATE: 2011
